FAERS Safety Report 9182752 (Version 2)
Quarter: 2014Q1

REPORT INFORMATION
  Report Type: Spontaneous
  Country: US (occurrence: US)
  Receive Date: 20130322
  Receipt Date: 20140318
  Transmission Date: 20141002
  Serious: No
  Sender: FDA-Public Use
  Company Number: US-BRISTOL-MYERS SQUIBB COMPANY-17092180

PATIENT
  Age: 76 Year
  Sex: Male

DRUGS (5)
  1. ERBITUX [Suspect]
     Indication: HEAD AND NECK CANCER
     Dosage: LOADING DOSE:876MG?WEEKLY DOSE:532MG
     Route: 042
     Dates: start: 20120606, end: 20121024
  2. PEPCID [Concomitant]
  3. OMEPRAZOLE [Concomitant]
  4. NEURONTIN [Concomitant]
     Dosage: SUSPENSION
  5. MORPHINE [Concomitant]
     Dosage: Q4-6HRS

REACTIONS (1)
  - Anaemia [Recovering/Resolving]
